FAERS Safety Report 8712210 (Version 3)
Quarter: 2012Q4

REPORT INFORMATION
  Report Type: 
  Country: DK (occurrence: JP)
  Receive Date: 20120807
  Receipt Date: 20120919
  Transmission Date: 20130627
  Serious: Yes (Other)
  Sender: FDA-Public Use
  Company Number: JP-FRI-1000037588

PATIENT
  Age: 19 Year
  Sex: Female

DRUGS (2)
  1. LEXAPRO [Suspect]
     Dosage: 10 mg
     Route: 048
     Dates: start: 201111
  2. WYPAX [Concomitant]
     Dosage: 0.5 mg
     Route: 048

REACTIONS (1)
  - Intentional self-injury [Recovered/Resolved]
